FAERS Safety Report 7588654-2 (Version None)
Quarter: 2011Q3

REPORT INFORMATION
  Report Type: 
  Country: None (occurrence: None)
  Receive Date: 20110705
  Receipt Date: 20110623
  Transmission Date: 20111222
  Serious: Yes (Hospitalization, Other)
  Sender: FDA-Public Use
  Company Number: US-BAYER-2010-002066

PATIENT
  Age: 39 Year
  Sex: Female
  Weight: 63.492 kg

DRUGS (7)
  1. PROTONIX [Concomitant]
     Dosage: 40 MG, UNK
     Route: 048
     Dates: start: 20090106
  2. YAZ [Suspect]
     Indication: CONTRACEPTION
     Dosage: 1 DF, QD
     Route: 048
     Dates: start: 20071101, end: 20100201
  3. AMOXICILLIN [Concomitant]
     Dosage: 500 MG, UNK
     Route: 048
     Dates: start: 20081230, end: 20090104
  4. SINGULAIR [Concomitant]
     Dosage: 10 MG, UNK
     Route: 048
     Dates: start: 20090125
  5. CLONAZEPAM [Concomitant]
     Dosage: 0.5 MG, UNK
     Route: 048
     Dates: start: 20081230, end: 20090109
  6. HYDROCODONE BITARTRATE AND ACETAMINOPHEN [Concomitant]
     Dosage: 7.5
     Route: 048
     Dates: start: 20090106, end: 20090113
  7. AZITHROMYCIN [Concomitant]
     Dosage: 250 MG, UNK
     Route: 048
     Dates: start: 20090202, end: 20090207

REACTIONS (7)
  - PROCEDURAL PAIN [None]
  - PSYCHIATRIC SYMPTOM [None]
  - EMOTIONAL DISTRESS [None]
  - GALLBLADDER DISORDER [None]
  - ABDOMINAL PAIN [None]
  - CHOLECYSTITIS CHRONIC [None]
  - ANXIETY [None]
